FAERS Safety Report 4690844-3 (Version None)
Quarter: 2005Q2

REPORT INFORMATION
  Report Type: 
  Country: None (occurrence: None)
  Receive Date: 20050615
  Receipt Date: 20050607
  Transmission Date: 20051028
  Serious: Yes (Other)
  Sender: FDA-Public Use
  Company Number: US-JNJFOC-20050301172

PATIENT
  Sex: Male
  Weight: 121.11 kg

DRUGS (1)
  1. REMICADE [Suspect]
     Route: 042

REACTIONS (8)
  - GALLBLADDER OPERATION [None]
  - LUNG DISORDER [None]
  - NASAL OPERATION [None]
  - PULMONARY MASS [None]
  - SKIN GRAFT [None]
  - SURGERY [None]
  - TESTICULAR DISORDER [None]
  - TESTICULAR MASS [None]
